FAERS Safety Report 16782896 (Version 1)
Quarter: 2019Q3

REPORT INFORMATION
  Report Type: Spontaneous
  Country: BE (occurrence: BE)
  Receive Date: 20190906
  Receipt Date: 20190906
  Transmission Date: 20191005
  Serious: Yes (Other)
  Sender: FDA-Public Use
  Company Number: BE-GLAXOSMITHKLINE-BE2019160324

PATIENT
  Sex: Female

DRUGS (1)
  1. LAMBIPOL [Suspect]
     Active Substance: LAMOTRIGINE
     Indication: MENTAL DISORDER
     Dosage: UNK

REACTIONS (7)
  - Headache [Unknown]
  - Affect lability [Unknown]
  - Drug ineffective [Unknown]
  - Nervousness [Unknown]
  - Suicidal ideation [Unknown]
  - Disturbance in attention [Unknown]
  - Obsessive thoughts [Unknown]
